FAERS Safety Report 5143072-1 (Version None)
Quarter: 2006Q4

REPORT INFORMATION
  Report Type: 
  Country: None (occurrence: None)
  Receive Date: 20061101
  Receipt Date: 20061101
  Transmission Date: 20070319
  Serious: Yes (Life-Threatening)
  Sender: FDA-Public Use
  Company Number: None

PATIENT
  Sex: Male
  Weight: 79.8 kg

DRUGS (9)
  1. VYTORIN [Suspect]
     Indication: DYSLIPIDAEMIA
     Dates: start: 20060829, end: 20060922
  2. PROTONIX [Concomitant]
  3. PREDNISONE TAB [Concomitant]
  4. PLAVIX [Concomitant]
  5. M.V.I. [Concomitant]
  6. METOPROLOL TARTRATE [Concomitant]
  7. GENGRAF [Concomitant]
  8. CELLCEPT [Concomitant]
  9. CALCIUM CARBONATE [Concomitant]

REACTIONS (2)
  - RENAL FAILURE ACUTE [None]
  - RHABDOMYOLYSIS [None]
